FAERS Safety Report 8136568-1 (Version None)
Quarter: 2012Q1

REPORT INFORMATION
  Report Type: 
  Country: None (occurrence: None)
  Receive Date: 20120103
  Receipt Date: 20110830
  Transmission Date: 20120608
  Serious: No
  Sender: FDA-Public Use
  Company Number: AE-2011-001091

PATIENT
  Age: 52 Year
  Sex: Male

DRUGS (18)
  1. INSULIN NOVOLIN (INSULIN NOVOLIN 70/30) [Concomitant]
  2. RIBAVIRIN [Concomitant]
  3. LITHIUM CARBONATE [Concomitant]
  4. LEVOTHYROXINE SODIUM [Concomitant]
  5. PROPRANOLOL [Concomitant]
  6. EPOETIN ALFA (EPOETIN ALFA) [Concomitant]
  7. TEMAZEPAM [Concomitant]
  8. METFORMIN HCL [Concomitant]
  9. ARIPIPRAZOLE [Concomitant]
  10. FLUTICASONE PROPIONATE [Concomitant]
  11. FLUNISOLIDE (FLUNISOLIDE) [Concomitant]
  12. DOCUSATE (DOCUSATE) [Concomitant]
  13. PEGINTERFERON ALFA-2A [Concomitant]
  14. TRAMADOL HCL [Concomitant]
  15. INCIVEK [Suspect]
     Dosage: 2250 MG (750 MG,1 IN 1 8 HR)
     Dates: start: 20110722
  16. LORATADINE [Concomitant]
  17. TERAZOSIN HCL [Concomitant]
  18. LOPERAMIDE [Concomitant]

REACTIONS (2)
  - ORAL DISCOMFORT [None]
  - APHAGIA [None]
